FAERS Safety Report 23029173 (Version 2)
Quarter: 2023Q4

REPORT INFORMATION
  Report Type: Spontaneous
  Country: US (occurrence: US)
  Receive Date: 20231004
  Receipt Date: 20231026
  Transmission Date: 20240109
  Serious: Yes (Other)
  Sender: FDA-Public Use
  Company Number: US-BRISTOL-MYERS SQUIBB COMPANY-2023-139807

PATIENT
  Age: 69 Year
  Sex: Male

DRUGS (1)
  1. POMALYST [Suspect]
     Active Substance: POMALIDOMIDE
     Indication: Plasma cell myeloma
     Dosage: TAKE 1 CAPSULE BY MOUTH DAILY AT BEDTIME FOR 21 DAYS THEN STOP FOR 7 DAYS. DO NOT EAT 2 HRS BEFORE O
     Route: 048
     Dates: start: 20230929

REACTIONS (4)
  - Back pain [Not Recovered/Not Resolved]
  - Swelling face [Unknown]
  - Eye swelling [Unknown]
  - Headache [Unknown]
